FAERS Safety Report 5468777-4 (Version None)
Quarter: 2007Q3

REPORT INFORMATION
  Report Type: 
  Country: None (occurrence: None)
  Receive Date: 20070926
  Receipt Date: 20070919
  Transmission Date: 20080115
  Serious: Yes (Other)
  Sender: FDA-Public Use
  Company Number: JP-PFIZER INC-2007049779

PATIENT
  Sex: Male

DRUGS (2)
  1. GENOTROPIN [Suspect]
     Indication: PRADER-WILLI SYNDROME
     Dosage: DAILY DOSE:.3MG
     Route: 058
  2. GENOTROPIN [Suspect]
     Dosage: DAILY DOSE:.5MG
     Route: 058

REACTIONS (1)
  - EPILEPSY [None]
